FAERS Safety Report 7514202-9 (Version None)
Quarter: 2011Q2

REPORT INFORMATION
  Report Type: 
  Country: None (occurrence: None)
  Receive Date: 20110531
  Receipt Date: 20110526
  Transmission Date: 20111010
  Serious: Yes (Hospitalization)
  Sender: FDA-Public Use
  Company Number: CH-GILEAD-2011-0039869

PATIENT
  Age: 58 Year
  Sex: Female
  Weight: 50 kg

DRUGS (2)
  1. TRUVADA [Suspect]
     Indication: HIV INFECTION
     Route: 048
  2. KALETRA [Suspect]
     Indication: HIV INFECTION
     Route: 048

REACTIONS (7)
  - KIDNEY FIBROSIS [None]
  - ALBUMINURIA [None]
  - FANCONI SYNDROME ACQUIRED [None]
  - LYMPHOPENIA [None]
  - ANAEMIA [None]
  - HAEMATURIA [None]
  - DECREASED APPETITE [None]
